FAERS Safety Report 19235232 (Version 3)
Quarter: 2021Q2

REPORT INFORMATION
  Report Type: Report from Study
  Country: None (occurrence: US)
  Receive Date: 20210509
  Receipt Date: 20210616
  Transmission Date: 20210717
  Serious: Yes (Other)
  Sender: FDA-Public Use
  Company Number: US-ABBVIE-21K-163-3889443-00

PATIENT
  Age: 64 Year
  Sex: Male
  Weight: 70.37 kg

DRUGS (4)
  1. RINVOQ [Suspect]
     Active Substance: UPADACITINIB
     Indication: RHEUMATOID ARTHRITIS
     Route: 048
     Dates: start: 2019
  2. RINVOQ [Suspect]
     Active Substance: UPADACITINIB
     Route: 048
  3. LIDOCAINE. [Suspect]
     Active Substance: LIDOCAINE
     Indication: PRODUCT USED FOR UNKNOWN INDICATION
     Route: 065
  4. PREDNISONE. [Concomitant]
     Active Substance: PREDNISONE
     Indication: PRODUCT USED FOR UNKNOWN INDICATION

REACTIONS (15)
  - Fall [Recovered/Resolved]
  - Neuropathy peripheral [Unknown]
  - Pain in extremity [Recovered/Resolved]
  - Choking sensation [Recovered/Resolved]
  - Oropharyngeal pain [Recovered/Resolved]
  - Skin burning sensation [Recovered/Resolved]
  - Drug hypersensitivity [Recovered/Resolved]
  - Injection site pain [Recovered/Resolved]
  - Somnambulism [Not Recovered/Not Resolved]
  - Blood pressure decreased [Recovering/Resolving]
  - Blood test abnormal [Unknown]
  - Muscle spasms [Not Recovered/Not Resolved]
  - Skin laceration [Recovering/Resolving]
  - Chest pain [Recovered/Resolved]
  - Dizziness [Not Recovered/Not Resolved]

NARRATIVE: CASE EVENT DATE: 2019
